FAERS Safety Report 8052084-X (Version None)
Quarter: 2012Q1

REPORT INFORMATION
  Report Type: 
  Country: None (occurrence: None)
  Receive Date: 20120118
  Receipt Date: 20120112
  Transmission Date: 20120608
  Serious: No
  Sender: FDA-Public Use
  Company Number: US-PFIZER INC-2012010531

PATIENT
  Sex: Female

DRUGS (1)
  1. CELEBREX [Suspect]
     Dosage: 400 MG (TWO CAPSULES OF 200MG ORALLY IN A DAY)
     Route: 048

REACTIONS (2)
  - ERYTHEMA [None]
  - SWELLING FACE [None]
